FAERS Safety Report 13918448 (Version 2)
Quarter: 2017Q3

REPORT INFORMATION
  Report Type: Spontaneous
  Country: US (occurrence: US)
  Receive Date: 20170829
  Receipt Date: 20170906
  Transmission Date: 20171127
  Serious: Yes (Death, Hospitalization)
  Sender: FDA-Public Use
  Company Number: US-ACTELION-A-NJ2017-158338

PATIENT
  Age: 75 Year
  Sex: Male
  Weight: 69.84 kg

DRUGS (1)
  1. VELETRI [Suspect]
     Active Substance: EPOPROSTENOL
     Indication: PULMONARY HYPERTENSION
     Dosage: 5 NG/KG, PER MIN
     Route: 042

REACTIONS (6)
  - Hypotension [Unknown]
  - Abdominal pain [Unknown]
  - Anuria [Unknown]
  - Sepsis [Fatal]
  - Wound healing normal [Recovering/Resolving]
  - Nausea [Unknown]
